FAERS Safety Report 19421843 (Version 1)
Quarter: 2021Q2

REPORT INFORMATION
  Report Type: Spontaneous
  Country: CA (occurrence: CA)
  Receive Date: 20210616
  Receipt Date: 20210616
  Transmission Date: 20210717
  Serious: Yes (Other)
  Sender: FDA-Public Use
  Company Number: CA-SAMSUNG BIOEPIS-SB-2021-14411

PATIENT
  Age: 25 Year
  Sex: Male

DRUGS (2)
  1. INFLIXIMAB [Suspect]
     Active Substance: INFLIXIMAB
     Indication: CROHN^S DISEASE
     Route: 042
  2. REMICADE [Suspect]
     Active Substance: INFLIXIMAB
     Indication: PRODUCT USED FOR UNKNOWN INDICATION
     Dosage: POWDER FOR SOLUTION INTRAVENOUS, DOSE: UNKNOWN
     Route: 065

REACTIONS (7)
  - Drug level below therapeutic [Recovered/Resolved]
  - Wrong product administered [Recovered/Resolved]
  - Limb injury [Recovered/Resolved]
  - Product dispensing error [Recovered/Resolved]
  - Intentional product use issue [Recovered/Resolved]
  - Wound infection [Recovered/Resolved]
  - Off label use [Recovered/Resolved]
